FAERS Safety Report 4440170-2 (Version None)
Quarter: 2004Q3

REPORT INFORMATION
  Report Type: 
  Country: None (occurrence: None)
  Receive Date: 20040901
  Receipt Date: 20040901
  Transmission Date: 20050211
  Serious: Yes (Hospitalization)
  Sender: FDA-Public Use
  Company Number: None

PATIENT
  Age: 54 Year
  Sex: Female
  Weight: 50.3493 kg

DRUGS (1)
  1. CASPOFUNGIN (MERCK) 50MG VIAL [Suspect]
     Indication: FUNGAEMIA
     Dosage: 50 MG IV QD
     Route: 042
     Dates: start: 20040805, end: 20040822

REACTIONS (4)
  - ARTHRALGIA [None]
  - OEDEMA PERIPHERAL [None]
  - PAIN IN EXTREMITY [None]
  - SKIN DISCOLOURATION [None]
